FAERS Safety Report 9147105 (Version 1)
Quarter: 2013Q1

REPORT INFORMATION
  Report Type: Spontaneous
  Country: NL (occurrence: None)
  Receive Date: 20130213
  Receipt Date: 20130213
  Transmission Date: 20140127
  Serious: Yes (Death, Hospitalization)
  Sender: FDA-Public Use
  Company Number: 1594877

PATIENT
  Age: 8 Year
  Sex: Male

DRUGS (7)
  1. PHENYTOIN SODIUM [Suspect]
     Indication: CONVULSION
  2. LEVETIRACETAM [Suspect]
     Indication: CONVULSION
     Route: 048
  3. MIDAZOLAM [Suspect]
     Indication: CONVULSION
  4. PHENOBARBITONE [Suspect]
     Indication: CONVULSION
  5. TOPIRAMATE [Suspect]
     Indication: CONVULSION
  6. THIOPENTAL SODIUM [Suspect]
     Indication: CONVULSION
  7. CARBAMAZEPINE [Suspect]
     Indication: CONVULSION

REACTIONS (10)
  - Coagulopathy [None]
  - Haemodynamic instability [None]
  - Viral infection [None]
  - Hyperthermia [None]
  - Renal failure [None]
  - Multi-organ failure [None]
  - Respiratory failure [None]
  - Hyperkalaemia [None]
  - Liver disorder [None]
  - Hepatic failure [None]
